APPROVED DRUG PRODUCT: LACOSAMIDE
Active Ingredient: LACOSAMIDE
Strength: 10MG/ML
Dosage Form/Route: SOLUTION;ORAL
Application: A215154 | Product #001 | TE Code: AA
Applicant: CHARTWELL RX SCIENCES LLC
Approved: May 15, 2024 | RLD: No | RS: No | Type: RX